FAERS Safety Report 4295468-8 (Version None)
Quarter: 2004Q1

REPORT INFORMATION
  Report Type: 
  Country: None (occurrence: None)
  Receive Date: 20040216
  Receipt Date: 20040210
  Transmission Date: 20041129
  Serious: Yes (Other)
  Sender: FDA-Public Use
  Company Number: DE-ROCHE-358624

PATIENT
  Age: 50 Year
  Sex: Female

DRUGS (3)
  1. ROFERON-A [Suspect]
     Route: 058
     Dates: start: 20031115
  2. CITALOPRAM [Concomitant]
     Indication: DEPRESSION
     Route: 048
  3. PRESOMEN COMPOSITUM [Concomitant]
     Route: 048

REACTIONS (4)
  - BLEEDING TIME PROLONGED [None]
  - BRAIN OEDEMA [None]
  - CEREBRAL HAEMORRHAGE [None]
  - EPISTAXIS [None]
